FAERS Safety Report 9200204 (Version 1)
Quarter: 2013Q1

REPORT INFORMATION
  Report Type: Other
  Country: CH (occurrence: CH)
  Receive Date: 20130329
  Receipt Date: 20130329
  Transmission Date: 20140127
  Serious: Yes (Other)
  Sender: FDA-Public Use
  Company Number: CH-BRISTOL-MYERS SQUIBB COMPANY-18731281

PATIENT
  Sex: Female

DRUGS (3)
  1. METFORMIN HCL [Suspect]
  2. ALLOPURINOL [Suspect]
  3. ROSUVASTATIN [Suspect]

REACTIONS (2)
  - Abortion induced [Unknown]
  - Pregnancy [Recovered/Resolved]
